FAERS Safety Report 6866295-X (Version None)
Quarter: 2010Q2

REPORT INFORMATION
  Report Type: 
  Country: None (occurrence: None)
  Receive Date: 20100601
  Receipt Date: 20090103
  Transmission Date: 20101027
  Serious: No
  Sender: FDA-Public Use
  Company Number: 2009-01022

PATIENT
  Age: 51 Year
  Sex: Male
  Weight: 90.7194 kg

DRUGS (1)
  1. ZICAM EXTREME CONGESTION RELIEF [Suspect]
     Dosage: BID X 3 DAYS, 6 DOSES
     Dates: start: 20081231, end: 20090102

REACTIONS (2)
  - AGEUSIA [None]
  - ANOSMIA [None]
